FAERS Safety Report 10384413 (Version 1)
Quarter: 2014Q1

REPORT INFORMATION
  Report Type: Spontaneous
  Country: US (occurrence: None)
  Receive Date: 20140306
  Receipt Date: 20140306
  Transmission Date: 20141002
  Serious: Yes (Other)
  Sender: FDA-Public Use
  Company Number: 163-21880-13053635

PATIENT
  Age: 62 Year
  Sex: Female
  Weight: 82.56 kg

DRUGS (6)
  1. REVLIMIB (LENALIDOMIDE) (25 MILLIGRAM, CAPSULES) [Suspect]
     Indication: PLASMA CELL MYELOMA
     Route: 048
     Dates: start: 201106, end: 2011
  2. BENDAMUSTINE [Concomitant]
  3. FAMCICLOVIR [Concomitant]
  4. PRILOSEC (OMEPRAZOLE) (CAPSULES) [Concomitant]
  5. DEXAMETHASONE SODIUM (DEXAMETHASONE SODIUM SUCCINATE) [Concomitant]
  6. CALCIUM 500 + VIT D (CALCIUM D3 ^STADA^) [Concomitant]

REACTIONS (2)
  - Platelet count decreased [None]
  - Drug ineffective [None]
